FAERS Safety Report 17389586 (Version 1)
Quarter: 2020Q1

REPORT INFORMATION
  Report Type: Spontaneous
  Country: US (occurrence: US)
  Receive Date: 20200207
  Receipt Date: 20200207
  Transmission Date: 20200409
  Serious: No
  Sender: FDA-Public Use
  Company Number: US-DRREDDYS-USA/USA/20/0119018

PATIENT
  Sex: Female
  Weight: 51.75 kg

DRUGS (2)
  1. BUPRENORPHINE AND NALOXONE SUBLINGUAL FILM 2 MG/0.5 MG AND 8MG/2MG [Suspect]
     Active Substance: BUPRENORPHINE\NALOXONE
     Indication: PRODUCT USED FOR UNKNOWN INDICATION
     Route: 060
     Dates: start: 20200117
  2. NEURONTIN [Concomitant]
     Active Substance: GABAPENTIN
     Indication: PRODUCT USED FOR UNKNOWN INDICATION
     Route: 065

REACTIONS (4)
  - Drug ineffective [Unknown]
  - Rhinorrhoea [Unknown]
  - Product quality issue [Unknown]
  - Product taste abnormal [Unknown]
